FAERS Safety Report 10066670 (Version 4)
Quarter: 2014Q4

REPORT INFORMATION
  Report Type: Spontaneous
  Country: CN (occurrence: CN)
  Receive Date: 20140408
  Receipt Date: 20141024
  Transmission Date: 20150528
  Serious: Yes (Other)
  Sender: FDA-Public Use
  Company Number: PHHY2014CN033283

PATIENT
  Age: 4 Year

DRUGS (1)
  1. SANDIMMUN NEORAL [Suspect]
     Active Substance: CYCLOSPORINE
     Indication: PRODUCT USED FOR UNKNOWN INDICATION
     Dosage: 5ML: 250MG (1 AMPOULE)
     Route: 042
     Dates: start: 20140318, end: 20140403

REACTIONS (6)
  - Chest discomfort [Unknown]
  - Hypersensitivity [Unknown]
  - Blood pressure decreased [Unknown]
  - Oxygen saturation decreased [Unknown]
  - Dyspnoea [Unknown]
  - Shock [Unknown]

NARRATIVE: CASE EVENT DATE: 20140318
